FAERS Safety Report 13580976 (Version 1)
Quarter: 2017Q2

REPORT INFORMATION
  Report Type: Spontaneous
  Country: US (occurrence: US)
  Receive Date: 20170525
  Receipt Date: 20170525
  Transmission Date: 20170830
  Serious: No
  Sender: FDA-Public Use
  Company Number: None

PATIENT
  Age: 62 Year
  Sex: Male
  Weight: 135 kg

DRUGS (1)
  1. TAMSULOSIN CAP 0.4MG SUN PHARMACEUTICAL [Suspect]
     Active Substance: TAMSULOSIN
     Indication: BENIGN PROSTATIC HYPERPLASIA
     Dosage: 2 CAPSULE(S); 30MIN AFTER MEAL?
     Route: 048
     Dates: start: 20161109

REACTIONS (5)
  - Product substitution issue [None]
  - Drug ineffective [None]
  - Product size issue [None]
  - Product colour issue [None]
  - Product quality issue [None]

NARRATIVE: CASE EVENT DATE: 20170502
